FAERS Safety Report 8517113-5 (Version None)
Quarter: 2012Q3

REPORT INFORMATION
  Report Type: 
  Country: None (occurrence: None)
  Receive Date: 20120718
  Receipt Date: 20120710
  Transmission Date: 20120928
  Serious: Yes (Hospitalization)
  Sender: FDA-Public Use
  Company Number: FR-BRISTOL-MYERS SQUIBB COMPANY-16420077

PATIENT
  Age: 87 Year
  Sex: Female

DRUGS (7)
  1. AMLODIPINE BESYLATE [Suspect]
     Route: 048
     Dates: start: 20110901, end: 20120126
  2. ATHYMIL [Concomitant]
  3. ACETAMINOPHEN [Concomitant]
  4. COUMADIN [Suspect]
     Route: 048
     Dates: start: 20050101
  5. CACIT [Concomitant]
  6. VITAMIN D [Concomitant]
  7. IMOVANE [Concomitant]

REACTIONS (4)
  - CARDIAC FAILURE [None]
  - NECROSIS [None]
  - VASCULAR PURPURA [None]
  - ANAEMIA [None]
